FAERS Safety Report 4713153-2 (Version None)
Quarter: 2005Q3

REPORT INFORMATION
  Report Type: 
  Country: None (occurrence: None)
  Receive Date: 20050713
  Receipt Date: 20050705
  Transmission Date: 20060218
  Serious: Yes (Other)
  Sender: FDA-Public Use
  Company Number: SE-GLAXOSMITHKLINE-B0387336A

PATIENT
  Age: 70 Year
  Sex: Male

DRUGS (1)
  1. DERMOVAT [Suspect]
     Indication: LICHEN SCLEROSUS
     Route: 065

REACTIONS (3)
  - CONDITION AGGRAVATED [None]
  - ERYTHEMA [None]
  - SKIN ATROPHY [None]
